FAERS Safety Report 4950879-X (Version None)
Quarter: 2006Q1

REPORT INFORMATION
  Report Type: 
  Country: None (occurrence: None)
  Receive Date: 20060315
  Receipt Date: 20060302
  Transmission Date: 20060701
  Serious: Yes (Other)
  Sender: FDA-Public Use
  Company Number: S06-NZL-00987-02

PATIENT
  Sex: Female

DRUGS (3)
  1. CERVIDIL [Suspect]
     Indication: ARTHROPATHY
     Dosage: 10 MG ONCE TRANSPLACENTAL
     Route: 064
     Dates: start: 20060209, end: 20060210
  2. CERVIDIL [Suspect]
     Indication: LABOUR INDUCTION
     Dosage: 10 MG ONCE TRANSPLACENTAL
     Route: 064
     Dates: start: 20060209, end: 20060210
  3. PETHIDINE [Concomitant]

REACTIONS (4)
  - CAESAREAN SECTION [None]
  - DRUG EXPOSURE DURING PREGNANCY [None]
  - FOETAL HEART RATE DECELERATION [None]
  - TACHYCARDIA FOETAL [None]
